FAERS Safety Report 13451725 (Version 2)
Quarter: 2018Q1

REPORT INFORMATION
  Report Type: Spontaneous
  Country: US (occurrence: US)
  Receive Date: 20170418
  Receipt Date: 20180125
  Transmission Date: 20180508
  Serious: No
  Sender: FDA-Public Use
  Company Number: US-PFIZER INC-2017162493

PATIENT
  Age: 69 Year
  Sex: Female

DRUGS (11)
  1. NABUMETONE. [Suspect]
     Active Substance: NABUMETONE
     Dosage: UNK
  2. ALENDRONATE SODIUM. [Suspect]
     Active Substance: ALENDRONATE SODIUM
     Dosage: UNK
  3. NAPROSYN [Suspect]
     Active Substance: NAPROXEN
     Dosage: UNK
  4. CALCIUM CARBONATE. [Suspect]
     Active Substance: CALCIUM CARBONATE
     Dosage: UNK
  5. ASACOL [Suspect]
     Active Substance: MESALAMINE
     Dosage: UNK
  6. MELOXICAM. [Suspect]
     Active Substance: MELOXICAM
     Dosage: UNK
  7. AVINZA [Suspect]
     Active Substance: MORPHINE SULFATE
     Dosage: UNK
  8. FENTANYL. [Suspect]
     Active Substance: FENTANYL
     Dosage: 100MCG/HR
  9. IBUPROFEN. [Suspect]
     Active Substance: IBUPROFEN
     Dosage: UNK
  10. ASPIRIN. [Suspect]
     Active Substance: ASPIRIN
     Dosage: UNK
  11. AZATHIOPRINE. [Suspect]
     Active Substance: AZATHIOPRINE
     Dosage: UNK

REACTIONS (1)
  - Drug hypersensitivity [Unknown]
